FAERS Safety Report 5950627-0 (Version None)
Quarter: 2008Q4

REPORT INFORMATION
  Report Type: 
  Country: None (occurrence: None)
  Receive Date: 20081112
  Receipt Date: 20081106
  Transmission Date: 20090506
  Serious: Yes (Hospitalization, Other)
  Sender: FDA-Public Use
  Company Number: CN-AVENTIS-200818742GDDC

PATIENT
  Age: 47 Year
  Sex: Male

DRUGS (6)
  1. AMARYL [Suspect]
     Indication: TYPE 2 DIABETES MELLITUS
     Route: 048
     Dates: start: 20080301, end: 20080401
  2. AMARYL [Suspect]
     Route: 048
     Dates: start: 20080501, end: 20080801
  3. METFORMIN HCL [Concomitant]
     Indication: TYPE 2 DIABETES MELLITUS
     Dosage: DOSE QUANTITY: 0.5
     Route: 048
     Dates: start: 20080301, end: 20080801
  4. ACARBOSE [Concomitant]
     Indication: TYPE 2 DIABETES MELLITUS
     Route: 048
     Dates: start: 20080301, end: 20080801
  5. ROSIGLITAZONE [Concomitant]
     Indication: TYPE 2 DIABETES MELLITUS
     Route: 048
  6. INSULIN [Concomitant]
     Indication: TYPE 2 DIABETES MELLITUS

REACTIONS (2)
  - ACUTE LEUKAEMIA [None]
  - PANCYTOPENIA [None]
